FAERS Safety Report 19228987 (Version 2)
Quarter: 2021Q2

REPORT INFORMATION
  Report Type: Spontaneous
  Country: CN (occurrence: CN)
  Receive Date: 20210506
  Receipt Date: 20210520
  Transmission Date: 20210717
  Serious: Yes (Other)
  Sender: FDA-Public Use
  Company Number: CN-BAUSCH-BL-2021-015992

PATIENT
  Age: 64 Year
  Sex: Male

DRUGS (4)
  1. DEXAMETHASONE SODIUM PHOSPHATE. [Suspect]
     Active Substance: DEXAMETHASONE SODIUM PHOSPHATE
     Indication: MENINGITIS
     Route: 041
     Dates: start: 20190209
  2. LEVOFLOXACIN. [Suspect]
     Active Substance: LEVOFLOXACIN
     Indication: MENINGITIS STREPTOCOCCAL
     Dosage: ON DAY 3 OF ADMISSION
     Route: 065
     Dates: start: 20190212, end: 20190227
  3. PENICILLIN [Suspect]
     Active Substance: PENICILLIN
     Indication: MENINGITIS
     Route: 041
     Dates: start: 20190209, end: 20190227
  4. MANNITOL. [Concomitant]
     Active Substance: MANNITOL
     Indication: MENINGITIS
     Dates: start: 20190209

REACTIONS (1)
  - Deafness [Not Recovered/Not Resolved]

NARRATIVE: CASE EVENT DATE: 20190305
